FAERS Safety Report 5075854-9 (Version None)
Quarter: 2006Q3

REPORT INFORMATION
  Report Type: 
  Country: None (occurrence: None)
  Receive Date: 20060809
  Receipt Date: 20060106
  Transmission Date: 20061208
  Serious: No
  Sender: FDA-Public Use
  Company Number: US-AMGEN-US163975

PATIENT
  Sex: Male

DRUGS (11)
  1. EPOGEN [Suspect]
     Indication: DIALYSIS
     Dates: start: 20050201
  2. VITAMINS [Concomitant]
  3. COUMADIN [Concomitant]
  4. ENALAPRIL MALEATE [Concomitant]
  5. HYDROXYZINE [Concomitant]
  6. LASIX [Concomitant]
  7. METOPROLOL TARTRATE [Concomitant]
  8. NIFEDIPINE [Concomitant]
  9. PROTONIX [Concomitant]
  10. RENAGEL [Concomitant]
  11. SENSIPAR [Concomitant]

REACTIONS (2)
  - GRAFT THROMBOSIS [None]
  - THERAPEUTIC RESPONSE DECREASED [None]
